FAERS Safety Report 4831620-8 (Version None)
Quarter: 2005Q4

REPORT INFORMATION
  Report Type: 
  Country: None (occurrence: None)
  Receive Date: 20051118
  Receipt Date: 20050930
  Transmission Date: 20060501
  Serious: Yes (Hospitalization, Disabling)
  Sender: FDA-Public Use
  Company Number: US-MERCK-0510USA01889

PATIENT
  Age: 59 Year
  Sex: Male
  Weight: 91 kg

DRUGS (9)
  1. VIOXX [Suspect]
     Indication: SHOULDER PAIN
     Route: 048
  2. VIOXX [Suspect]
     Route: 048
  3. FOLIC ACID [Concomitant]
     Route: 065
  4. LESCOL [Concomitant]
     Route: 065
  5. LOTENSIN [Concomitant]
     Route: 065
  6. PREVACID [Concomitant]
     Route: 065
  7. VANCENASE AQ NASAL SPRAY [Concomitant]
     Route: 065
  8. ZYRTEC [Concomitant]
     Route: 065
  9. PRAVACHOL [Concomitant]
     Route: 065

REACTIONS (4)
  - ARTHROPATHY [None]
  - CHEST PAIN [None]
  - EMOTIONAL DISTRESS [None]
  - MYOCARDIAL INFARCTION [None]
